FAERS Safety Report 7932816-9 (Version None)
Quarter: 2011Q4

REPORT INFORMATION
  Report Type: 
  Country: None (occurrence: None)
  Receive Date: 20111122
  Receipt Date: 20111117
  Transmission Date: 20120403
  Serious: Yes (Hospitalization)
  Sender: FDA-Public Use
  Company Number: FR-PFIZER INC-2011281451

PATIENT
  Age: 80 Year
  Sex: Male

DRUGS (13)
  1. ZOLPIDEM TARTRATE [Concomitant]
     Dosage: 10 MG, UNK
     Route: 048
     Dates: start: 20110930
  2. RAMIPRIL [Concomitant]
     Dosage: 1.25 MG, UNK
     Route: 048
     Dates: start: 20111004
  3. PROCORALAN [Concomitant]
     Dosage: 5 MG, UNK
  4. BISOPROLOL [Concomitant]
     Dosage: 1.25 MG, UNK
  5. LASIX [Concomitant]
     Dosage: 40 MG, UNK
  6. REOPRO [Concomitant]
  7. ALFUZOSIN HCL [Concomitant]
     Dosage: 10 MG, UNK
     Route: 048
     Dates: start: 20111004
  8. NEXIUM [Concomitant]
     Dosage: 40 MG, UNK
  9. INSPRA [Concomitant]
     Dosage: 25 MG, UNK
  10. ATORVASTATIN CALCIUM [Suspect]
     Indication: INFARCTION
     Dosage: 40 MG, UNK
     Route: 048
     Dates: start: 20110930, end: 20111014
  11. ATORVASTATIN CALCIUM [Suspect]
     Dosage: 40 MG, UNK
     Route: 048
     Dates: start: 20111020, end: 20111024
  12. ASPIRIN [Concomitant]
     Indication: INFARCTION
     Dosage: 75 MG, UNK
     Route: 048
     Dates: start: 20110930
  13. PLAVIX [Concomitant]
     Indication: INFARCTION
     Dosage: 75 MG, UNK
     Route: 048
     Dates: start: 20110930

REACTIONS (1)
  - THROMBOCYTOPENIA [None]
